FAERS Safety Report 9645038 (Version 2)
Quarter: 2014Q1

REPORT INFORMATION
  Report Type: Spontaneous
  Country: FR (occurrence: FR)
  Receive Date: 20131025
  Receipt Date: 20140130
  Transmission Date: 20141002
  Serious: Yes (Other)
  Sender: FDA-Public Use
  Company Number: FR-NOVOPROD-390581

PATIENT
  Age: 42 Year
  Sex: Female

DRUGS (2)
  1. VICTOZA [Suspect]
     Indication: TYPE 2 DIABETES MELLITUS
     Dosage: UNKNOWN
     Route: 065
     Dates: start: 201301, end: 201306
  2. METFORMINE [Concomitant]
     Dosage: UNKNOWN
     Route: 048
     Dates: start: 201301

REACTIONS (2)
  - Sarcoidosis [Recovered/Resolved]
  - Weight decreased [Recovered/Resolved]
